FAERS Safety Report 9505585 (Version 1)
Quarter: 2013Q1

REPORT INFORMATION
  Report Type: Spontaneous
  Country: US (occurrence: None)
  Receive Date: 20130220
  Receipt Date: 20130220
  Transmission Date: 20140127
  Serious: No
  Sender: FDA-Public Use
  Company Number: 1000041315

PATIENT
  Age: 34 Year
  Sex: Female

DRUGS (3)
  1. VIBRYD [Suspect]
     Indication: DEPRESSION
     Dosage: (1 N 1D) ORAL
     Route: 048
     Dates: start: 201211, end: 201212
  2. HYDROCODONE (HYDROCODONE) (HYDROCODONE) [Concomitant]
  3. CYCLOBENZAPRINE (CYCLOBENZAPRINE) (CYCLOBENZAPRINE) [Concomitant]

REACTIONS (1)
  - Muscle spasms [None]
